FAERS Safety Report 8188495-1 (Version None)
Quarter: 2012Q1

REPORT INFORMATION
  Report Type: 
  Country: None (occurrence: None)
  Receive Date: 20120306
  Receipt Date: 20120301
  Transmission Date: 20120608
  Serious: Yes (Hospitalization, Other)
  Sender: FDA-Public Use
  Company Number: PHHY2012PA018537

PATIENT
  Age: 87 Year
  Sex: Female

DRUGS (10)
  1. OSTEMOMAX [Concomitant]
     Dosage: UNK
  2. TENORMIN [Concomitant]
     Dosage: UNK
  3. LASIX [Concomitant]
     Dosage: UNK
  4. IRBESARTAN [Concomitant]
     Dosage: UNK
     Dates: end: 20120228
  5. EXFORGE [Suspect]
     Dosage: (320/10 MG), DAILY
     Dates: start: 20101101
  6. NORVASC [Concomitant]
     Dosage: UNK
     Dates: end: 20120228
  7. LIPITOR [Concomitant]
     Dosage: UNK
  8. EXFORGE [Suspect]
     Indication: HYPERTENSION
     Dosage: (320/5 MG), DAILY
     Dates: start: 20090101
  9. INDAPAMIDE [Concomitant]
     Dosage: UNK
  10. ALDOMET [Concomitant]
     Dosage: UNK

REACTIONS (12)
  - KIDNEY SMALL [None]
  - BLOOD URIC ACID INCREASED [None]
  - BLOOD POTASSIUM DECREASED [None]
  - ARRHYTHMIA [None]
  - OEDEMA PERIPHERAL [None]
  - BLOOD PRESSURE INADEQUATELY CONTROLLED [None]
  - LOCALISED OEDEMA [None]
  - BLOOD SODIUM DECREASED [None]
  - EYELID OEDEMA [None]
  - BLOOD CREATININE INCREASED [None]
  - PULMONARY OEDEMA [None]
  - BLOOD UREA INCREASED [None]
